FAERS Safety Report 11223971 (Version 2)
Quarter: 2015Q3

REPORT INFORMATION
  Report Type: Report from Study
  Country: IL (occurrence: IL)
  Receive Date: 20150629
  Receipt Date: 20150710
  Transmission Date: 20151125
  Serious: Yes (Hospitalization)
  Sender: FDA-Public Use
  Company Number: PHHO2015IL010850

PATIENT
  Age: 2 Year
  Sex: Female
  Weight: 13.3 kg

DRUGS (3)
  1. ACZ885 [Suspect]
     Active Substance: CANAKINUMAB
     Dosage: 4 MG/KG
     Route: 058
     Dates: start: 20150507
  2. PREDNISONE. [Concomitant]
     Active Substance: PREDNISONE
     Indication: JUVENILE IDIOPATHIC ARTHRITIS
     Dosage: 4.5 MG, QD
     Route: 065
     Dates: start: 20150414
  3. MOMETASONE [Concomitant]
     Active Substance: MOMETASONE
     Indication: DERMATITIS ATOPIC
     Dosage: (BID)
     Route: 061
     Dates: start: 20150521

REACTIONS (1)
  - Viral infection [Recovered/Resolved]

NARRATIVE: CASE EVENT DATE: 20150617
